FAERS Safety Report 7420172-4 (Version None)
Quarter: 2011Q2

REPORT INFORMATION
  Report Type: 
  Country: None (occurrence: None)
  Receive Date: 20110413
  Receipt Date: 20110413
  Transmission Date: 20111010
  Serious: Yes (Life-Threatening, Hospitalization)
  Sender: FDA-Public Use
  Company Number: None

PATIENT
  Age: 72 Year
  Sex: Female
  Weight: 67.1324 kg

DRUGS (2)
  1. PLAVIX [Suspect]
     Indication: BLOOD CHOLESTEROL INCREASED
     Dosage: 1 TAB 1XD
  2. CEPHALEXIN [Suspect]
     Indication: INFECTION PROPHYLAXIS
     Dosage: 1 TAB 3XD
     Dates: start: 20110320, end: 20110329

REACTIONS (4)
  - MUSCULOSKELETAL PAIN [None]
  - TENDON PAIN [None]
  - EPISTAXIS [None]
  - FUNGAL INFECTION [None]
